FAERS Safety Report 10236740 (Version 1)
Quarter: 2014Q2

REPORT INFORMATION
  Report Type: Spontaneous
  Country: BR (occurrence: BR)
  Receive Date: 20140613
  Receipt Date: 20140613
  Transmission Date: 20141212
  Serious: Yes (Other)
  Sender: FDA-Public Use
  Company Number: BR-GLAXOSMITHKLINE-A1076962A

PATIENT
  Age: 81 Year
  Sex: Female

DRUGS (8)
  1. RYTMONORM [Suspect]
     Indication: PRODUCT USED FOR UNKNOWN INDICATION
     Dosage: 150MG TWICE PER DAY
     Route: 065
     Dates: start: 20140523, end: 20140603
  2. UNSPECIFIED DRUG [Concomitant]
     Indication: LIVER DISORDER
  3. DAFLON [Concomitant]
     Indication: ILL-DEFINED DISORDER
  4. LINAGLIPTIN [Concomitant]
     Indication: DIABETES MELLITUS
  5. RESFENOL [Concomitant]
  6. HALOPERIDOL [Concomitant]
  7. ALDOMET [Concomitant]
  8. UNKNOWN MEDICATION [Concomitant]
     Indication: GASTRIC DISORDER

REACTIONS (10)
  - Palpitations [Unknown]
  - Fatigue [Not Recovered/Not Resolved]
  - Decreased appetite [Unknown]
  - Dry mouth [Unknown]
  - Skin disorder [Unknown]
  - Erythema [Unknown]
  - Hypoaesthesia [Unknown]
  - Peripheral swelling [Unknown]
  - Liver disorder [Unknown]
  - Tachycardia [Recovered/Resolved]
